FAERS Safety Report 9229606 (Version 2)
Quarter: 2013Q2

REPORT INFORMATION
  Report Type: Spontaneous
  Country: US (occurrence: US)
  Receive Date: 20130414
  Receipt Date: 20130422
  Transmission Date: 20140414
  Serious: No
  Sender: FDA-Public Use
  Company Number: US-TEVA-397751USA

PATIENT
  Age: 46 Year
  Sex: Female
  Weight: 70.37 kg

DRUGS (4)
  1. COPAXONE [Suspect]
     Indication: RELAPSING-REMITTING MULTIPLE SCLEROSIS
     Dosage: EVERY OTHER DAY
     Dates: start: 200904, end: 20130308
  2. MULTIVITAMIN [Concomitant]
  3. SERTRALINE [Concomitant]
     Indication: DEPRESSION
  4. VITAMIN D [Concomitant]

REACTIONS (4)
  - Anxiety [Recovering/Resolving]
  - Fear [Recovering/Resolving]
  - Confusional state [Recovering/Resolving]
  - Platelet count decreased [Recovering/Resolving]
